FAERS Safety Report 9124728 (Version 2)
Quarter: 2013Q2

REPORT INFORMATION
  Report Type: Spontaneous
  Country: CA (occurrence: CA)
  Receive Date: 20130227
  Receipt Date: 20130412
  Transmission Date: 20140414
  Serious: Yes (Other)
  Sender: FDA-Public Use
  Company Number: CA-BAYER-2013-021619

PATIENT
  Age: 48 Year
  Sex: Female
  Weight: 79.37 kg

DRUGS (3)
  1. MIRENA [Suspect]
     Indication: ANAEMIA
     Dosage: 20 MCG/24HR, CONT
     Route: 015
     Dates: start: 20110704
  2. AVAPRO [Concomitant]
     Dosage: 150 MG, UNK
     Route: 048
  3. BISOPROLOL [Concomitant]
     Dosage: UNK

REACTIONS (6)
  - Abdominal pain [Recovering/Resolving]
  - Device dislocation [Recovering/Resolving]
  - Hysterectomy [Recovering/Resolving]
  - Uterine haemorrhage [Recovering/Resolving]
  - Uterine spasm [Recovering/Resolving]
  - Pelvic pain [None]
